FAERS Safety Report 7340782-2 (Version None)
Quarter: 2011Q1

REPORT INFORMATION
  Report Type: 
  Country: None (occurrence: None)
  Receive Date: 20110309
  Receipt Date: 20110227
  Transmission Date: 20110831
  Serious: Yes (Hospitalization, Other)
  Sender: FDA-Public Use
  Company Number: NL-MEDIMMUNE-MEDI-0012729

PATIENT
  Sex: Female
  Weight: 7 kg

DRUGS (12)
  1. SODIUM CHLORIDE [Concomitant]
  2. CARBAMAZEPINE [Concomitant]
  3. SEVELAMER [Concomitant]
     Dates: start: 20110225
  4. CALCIUM ACETATE [Concomitant]
  5. SYNAGIS [Suspect]
     Route: 030
     Dates: start: 20110221, end: 20110221
  6. PARACETAMOL [Concomitant]
  7. DARBEPOETIN ALFA [Concomitant]
  8. ERGOCALCIFEROL [Concomitant]
  9. SALUVIT [Concomitant]
  10. SYNAGIS [Suspect]
     Route: 030
     Dates: start: 20101014, end: 20101014
  11. CARBASALATE [Concomitant]
  12. LEVOTHYROXINE [Concomitant]

REACTIONS (8)
  - VOMITING [None]
  - DEHYDRATION [None]
  - HYPOTENSION [None]
  - EPILEPSY [None]
  - HEART RATE INCREASED [None]
  - INFANTILE SPITTING UP [None]
  - CEREBRAL INFARCTION [None]
  - FLUID IMBALANCE [None]
